FAERS Safety Report 21103519 (Version 2)
Quarter: 2022Q3

REPORT INFORMATION
  Report Type: Other
  Country: KR (occurrence: KR)
  Receive Date: 20220720
  Receipt Date: 20220921
  Transmission Date: 20221026
  Serious: Yes (Other)
  Sender: FDA-Public Use
  Company Number: KR-002147023-NVSC2022KR162371

PATIENT

DRUGS (1)
  1. RANIBIZUMAB [Suspect]
     Active Substance: RANIBIZUMAB
     Indication: Diabetic retinal oedema
     Dosage: 0.5 MG, QMO, (3 CONSECUTIVE INJECTIONS AT 1-MONTH INTERVALS)
     Route: 050

REACTIONS (1)
  - Vitreous haemorrhage [Recovered/Resolved]
